FAERS Safety Report 9281708 (Version 1)
Quarter: 2013Q2

REPORT INFORMATION
  Report Type: Spontaneous
  Country: FR (occurrence: FR)
  Receive Date: 20130509
  Receipt Date: 20130509
  Transmission Date: 20140414
  Serious: Yes (Other)
  Sender: FDA-Public Use
  Company Number: FR-BRISTOL-MYERS SQUIBB COMPANY-18861211

PATIENT
  Age: 49 Year
  Sex: Male

DRUGS (5)
  1. REYATAZ CAPS 300 MG [Suspect]
     Dosage: HARD CAPS
     Route: 048
     Dates: start: 20130212, end: 20130218
  2. EMTRIVA [Suspect]
     Dosage: HARD CAPS
     Dates: start: 20130127
  3. ISENTRESS [Suspect]
     Dosage: TABS
     Dates: start: 20130127
  4. NORVIR [Suspect]
     Dosage: TAB
     Route: 048
     Dates: start: 20130127, end: 20130212
  5. PREZISTA [Suspect]
     Route: 048
     Dates: start: 20130117, end: 20130212

REACTIONS (2)
  - Nephrolithiasis [Recovered/Resolved]
  - Hydronephrosis [Recovered/Resolved]
